FAERS Safety Report 5242183-X (Version None)
Quarter: 2007Q1

REPORT INFORMATION
  Report Type: 
  Country: None (occurrence: None)
  Receive Date: 20070213
  Receipt Date: 20070201
  Transmission Date: 20070707
  Serious: Yes (Other)
  Sender: FDA-Public Use
  Company Number: TPG2007A00094

PATIENT
  Age: 71 Year
  Sex: Male

DRUGS (6)
  1. ACTOS [Suspect]
     Indication: DIABETES MELLITUS NON-INSULIN-DEPENDENT
     Dosage: 15 MG (15 MG, 1 IN 1 D) PER ORAL
     Route: 048
     Dates: start: 20060118, end: 20060504
  2. GEVILION (GEMFIBROZIL) [Concomitant]
  3. GLUCOPHAGE [Concomitant]
  4. DIAMICRON (GLICLAZIDE) [Concomitant]
  5. ZESTRIL [Concomitant]
  6. ASPIRIN CARDIC (ACETYLSALICYLIC ACID) [Concomitant]

REACTIONS (1)
  - ACUTE PULMONARY OEDEMA [None]
